FAERS Safety Report 19074047 (Version 2)
Quarter: 2021Q2

REPORT INFORMATION
  Report Type: Spontaneous
  Country: CN (occurrence: CN)
  Receive Date: 20210330
  Receipt Date: 20210405
  Transmission Date: 20210717
  Serious: Yes (Hospitalization, Other)
  Sender: FDA-Public Use
  Company Number: CN-STRIDES ARCOLAB LIMITED-2021SP003621

PATIENT
  Age: 26 Year
  Sex: Male

DRUGS (10)
  1. VANCOMYCIN [Suspect]
     Active Substance: VANCOMYCIN
     Dosage: 500 MILLIGRAM, EVERY 12 HRS
     Route: 042
     Dates: start: 201906, end: 201906
  2. VANCOMYCIN [Suspect]
     Active Substance: VANCOMYCIN
     Dosage: 500 MILLIGRAM, EVERY 8 HOURS
     Route: 042
     Dates: start: 201906, end: 201906
  3. CEFTAZIDIME. [Concomitant]
     Active Substance: CEFTAZIDIME
     Indication: PRODUCT USED FOR UNKNOWN INDICATION
     Dosage: 2 GRAM, TID
     Route: 065
  4. OMEPRAZOLE. [Concomitant]
     Active Substance: OMEPRAZOLE
     Indication: PRODUCT USED FOR UNKNOWN INDICATION
     Dosage: 40 MILLIGRAM, QD
     Route: 065
  5. VANCOMYCIN [Suspect]
     Active Substance: VANCOMYCIN
     Indication: STAPHYLOCOCCAL INFECTION
     Dosage: 500 MILLIGRAM, EVERY 8 HOURS
     Route: 042
     Dates: start: 201906, end: 2019
  6. METOPROLOL. [Concomitant]
     Active Substance: METOPROLOL
     Indication: PRODUCT USED FOR UNKNOWN INDICATION
     Dosage: 50 MILLIGRAM PER DAY
     Route: 065
     Dates: start: 201906, end: 201906
  7. VANCOMYCIN [Suspect]
     Active Substance: VANCOMYCIN
     Indication: ENDOCARDITIS STAPHYLOCOCCAL
     Dosage: 1000 MILLIGRAM, EVERY 12 HRS
     Route: 042
     Dates: start: 201906, end: 201906
  8. BENZYLPENICILLIN [Suspect]
     Active Substance: PENICILLIN G
     Indication: EVIDENCE BASED TREATMENT
  9. BENZYLPENICILLIN [Suspect]
     Active Substance: PENICILLIN G
     Indication: ENDOCARDITIS
  10. BENZYLPENICILLIN [Suspect]
     Active Substance: PENICILLIN G
     Indication: BACTERAEMIA
     Dosage: 960 MILLIGRAM, EVERY 8 HRS
     Route: 065
     Dates: start: 201906

REACTIONS (2)
  - Haemoglobin decreased [Unknown]
  - Thrombocytopenia [Recovered/Resolved]

NARRATIVE: CASE EVENT DATE: 2019
